FAERS Safety Report 10218308 (Version 1)
Quarter: 2014Q2

REPORT INFORMATION
  Report Type: Spontaneous
  Country: CN (occurrence: CN)
  Receive Date: 20140605
  Receipt Date: 20140605
  Transmission Date: 20141212
  Serious: Yes (Other)
  Sender: FDA-Public Use
  Company Number: CN-ASTELLAS-2014JP008165

PATIENT
  Age: 706 Day
  Sex: Female

DRUGS (1)
  1. PROTOPIC [Suspect]
     Indication: ECZEMA
     Dosage: TWICE DAILY
     Route: 061

REACTIONS (4)
  - Deafness [Unknown]
  - Aphasia [Unknown]
  - Blindness [Unknown]
  - Off label use [Recovered/Resolved]
